FAERS Safety Report 20482366 (Version 2)
Quarter: 2022Q1

REPORT INFORMATION
  Report Type: Spontaneous
  Country: CZ (occurrence: CZ)
  Receive Date: 20220217
  Receipt Date: 20220223
  Transmission Date: 20220424
  Serious: Yes (Life-Threatening, Other)
  Sender: FDA-Public Use
  Company Number: CZ-009507513-1501CZE002662

PATIENT
  Age: 11 Year
  Sex: Female

DRUGS (16)
  1. FENOFIBRATE [Suspect]
     Active Substance: FENOFIBRATE
     Indication: Oligoastrocytoma
     Dosage: UNK
     Route: 065
  2. FENOFIBRATE [Suspect]
     Active Substance: FENOFIBRATE
     Indication: Spinal cord neoplasm
     Dosage: UNK
     Route: 065
  3. BEVACIZUMAB [Suspect]
     Active Substance: BEVACIZUMAB
     Indication: Spinal cord neoplasm
     Dosage: UNK
     Route: 065
  4. BEVACIZUMAB [Suspect]
     Active Substance: BEVACIZUMAB
     Indication: Oligoastrocytoma
     Dosage: UNK
     Route: 065
  5. CELECOXIB [Suspect]
     Active Substance: CELECOXIB
     Indication: Spinal cord neoplasm
     Dosage: UNK
     Route: 065
  6. CELECOXIB [Suspect]
     Active Substance: CELECOXIB
     Indication: Oligoastrocytoma
  7. ETOPOSIDE [Suspect]
     Active Substance: ETOPOSIDE
     Indication: Spinal cord neoplasm
     Dosage: 25 MILLIGRAM/SQ. METER, ONCE A DAY
     Route: 065
  8. ETOPOSIDE [Suspect]
     Active Substance: ETOPOSIDE
     Indication: Oligoastrocytoma
     Dosage: 12.5 MILLIGRAM/SQ. METER, ONCE A DAY
     Route: 065
  9. TEMOZOLOMIDE [Suspect]
     Active Substance: TEMOZOLOMIDE
     Indication: Oligoastrocytoma
     Dosage: 15 MILLIGRAM/SQ. METER, ONCE A DAY
     Route: 048
  10. TEMOZOLOMIDE [Suspect]
     Active Substance: TEMOZOLOMIDE
     Indication: Spinal cord neoplasm
     Dosage: 30 MILLIGRAM/SQ. METER, ONCE A DAY
     Route: 048
  11. TEMOZOLOMIDE [Suspect]
     Active Substance: TEMOZOLOMIDE
     Dosage: 90 MILLIGRAM/SQ. METER,FOR 42 DAYS
     Route: 065
  12. TRETINOIN [Suspect]
     Active Substance: TRETINOIN
     Indication: Oligoastrocytoma
     Dosage: UNK
     Route: 065
  13. TRETINOIN [Suspect]
     Active Substance: TRETINOIN
     Indication: Spinal cord neoplasm
  14. VITAMIN D [Suspect]
     Active Substance: VITAMIN D NOS
     Indication: Spinal cord neoplasm
     Dosage: UNK
     Route: 065
  15. VITAMIN D [Suspect]
     Active Substance: VITAMIN D NOS
     Indication: Oligoastrocytoma
     Dosage: UNK
     Route: 065
  16. VINBLASTINE [Suspect]
     Active Substance: VINBLASTINE
     Indication: Oligoastrocytoma
     Dosage: 6 MILLIGRAM/SQ. METER
     Route: 065

REACTIONS (2)
  - Myelosuppression [Unknown]
  - Product administration error [Unknown]
